FAERS Safety Report 7951889-0 (Version None)
Quarter: 2011Q4

REPORT INFORMATION
  Report Type: 
  Country: None (occurrence: None)
  Receive Date: 20111201
  Receipt Date: 20111201
  Transmission Date: 20120403
  Serious: Yes (Other)
  Sender: FDA-Public Use
  Company Number: None

PATIENT

DRUGS (1)
  1. AMLODIPINE BESYLATE AND BENAZEPRIL HCL [Suspect]
     Indication: HYPERTENSION
     Dosage: 5-10 MG
     Route: 048
     Dates: start: 20111116, end: 20111117

REACTIONS (7)
  - ASTHENIA [None]
  - BLOOD PRESSURE DECREASED [None]
  - VERTIGO [None]
  - DYSSTASIA [None]
  - PRODUCT SUBSTITUTION ISSUE [None]
  - DIZZINESS [None]
  - HEART RATE DECREASED [None]
